FAERS Safety Report 8002789-1 (Version None)
Quarter: 2011Q4

REPORT INFORMATION
  Report Type: 
  Country: None (occurrence: None)
  Receive Date: 20111222
  Receipt Date: 20111215
  Transmission Date: 20120403
  Serious: Yes (Other)
  Sender: FDA-Public Use
  Company Number: US-PFIZER INC-2011306329

PATIENT
  Sex: Female
  Weight: 71.655 kg

DRUGS (4)
  1. EFFEXOR XR [Suspect]
     Indication: DEPRESSION
     Dosage: 150 MG, 2X/DAY
     Route: 048
     Dates: end: 20111101
  2. LAMICTAL [Suspect]
     Indication: CONVULSION
     Dosage: 250 MG, 2X/DAY
     Route: 048
  3. EFFEXOR XR [Suspect]
     Indication: CONVULSION
  4. VALIUM [Suspect]
     Indication: DEPRESSION
     Dosage: 5 MG, 1X/DAY
     Route: 048
     Dates: start: 20110101

REACTIONS (7)
  - WEIGHT INCREASED [None]
  - HAEMOGLOBIN DECREASED [None]
  - MOOD ALTERED [None]
  - PHOTOPSIA [None]
  - DRUG INEFFECTIVE [None]
  - DIZZINESS [None]
  - CRYING [None]
